FAERS Safety Report 24888836 (Version 1)
Quarter: 2025Q1

REPORT INFORMATION
  Report Type: Spontaneous
  Country: US (occurrence: US)
  Receive Date: 20250127
  Receipt Date: 20250127
  Transmission Date: 20250409
  Serious: Yes (Hospitalization, Other)
  Sender: BECTON DICKINSON
  Company Number: US-BECTON DICKINSON-US-BD-25-000029

PATIENT
  Age: 27 Year
  Sex: Male

DRUGS (1)
  1. CHLORHEXIDINE GLUCONATE\ISOPROPYL ALCOHOL [Suspect]
     Active Substance: CHLORHEXIDINE GLUCONATE\ISOPROPYL ALCOHOL
     Indication: Infection prophylaxis
     Route: 061

REACTIONS (1)
  - Vascular pseudoaneurysm [Recovered/Resolved]
